FAERS Safety Report 10763598 (Version 1)
Quarter: 2015Q1

REPORT INFORMATION
  Report Type: Spontaneous
  Country: US (occurrence: US)
  Receive Date: 20150204
  Receipt Date: 20150204
  Transmission Date: 20150721
  Serious: No
  Sender: FDA-Public Use
  Company Number: US-GLAXOSMITHKLINE-US2014GSK049229

PATIENT
  Sex: Male

DRUGS (1)
  1. VOTRIENT [Suspect]
     Active Substance: PAZOPANIB HYDROCHLORIDE
     Indication: MALIGNANT PLEURAL EFFUSION
     Dosage: UNK, U

REACTIONS (8)
  - Stomatitis [Unknown]
  - Asthenia [Unknown]
  - Nasal dryness [Unknown]
  - Diarrhoea [Unknown]
  - Glossitis [Unknown]
  - Dyspnoea [Unknown]
  - Epistaxis [Unknown]
  - Abdominal pain upper [Unknown]
